FAERS Safety Report 12468467 (Version 1)
Quarter: 2016Q2

REPORT INFORMATION
  Report Type: Report from Study
  Country: US (occurrence: US)
  Receive Date: 20160615
  Receipt Date: 20160615
  Transmission Date: 20160815
  Serious: Yes (Other)
  Sender: FDA-Public Use
  Company Number: US-TAKEDA-2016TUS009833

PATIENT
  Sex: Female
  Weight: 58.5 kg

DRUGS (9)
  1. TYLENOL [Concomitant]
     Active Substance: ACETAMINOPHEN
     Indication: HEADACHE
     Dosage: UNK, 1/WEEK
     Route: 048
     Dates: start: 20150807, end: 20151220
  2. B-COMPLEX                          /06817001/ [Concomitant]
     Dosage: UNK, QD
     Route: 048
     Dates: start: 20150807, end: 20160429
  3. IRON [Concomitant]
     Active Substance: IRON
     Dosage: UNK, QD
     Route: 048
     Dates: start: 20150807, end: 20160429
  4. PREDNISONE. [Concomitant]
     Active Substance: PREDNISONE
     Dosage: 2.5 MG, UNK
     Route: 048
     Dates: start: 20151128, end: 20160130
  5. VITAMIN D3 [Concomitant]
     Active Substance: CHOLECALCIFEROL
     Dosage: UNK UNK, QD
     Route: 048
     Dates: start: 20150807, end: 20160429
  6. VEDOLIZUMAB [Suspect]
     Active Substance: VEDOLIZUMAB
     Indication: COLITIS ULCERATIVE
     Dosage: 300 MG, UNK
     Route: 065
     Dates: start: 20151030, end: 20151030
  7. PREDNISONE. [Concomitant]
     Active Substance: PREDNISONE
     Indication: COLITIS ULCERATIVE
     Dosage: UNK
     Route: 048
     Dates: start: 20150807, end: 20151127
  8. CALCIUM [Concomitant]
     Active Substance: CALCIUM
     Dosage: UNK, QD
     Route: 048
     Dates: start: 20150807, end: 20160429
  9. VITAMIN C [Concomitant]
     Active Substance: ASCORBIC ACID
     Dosage: 500 MG, QD
     Route: 048
     Dates: start: 20150807, end: 20160429

REACTIONS (2)
  - Foetal growth restriction [Unknown]
  - Pregnancy [Unknown]
